FAERS Safety Report 25554754 (Version 1)
Quarter: 2025Q3

REPORT INFORMATION
  Report Type: Spontaneous
  Country: EU (occurrence: EU)
  Receive Date: 20250715
  Receipt Date: 20250715
  Transmission Date: 20251021
  Serious: Yes (Other)
  Sender: CELLTRION
  Company Number: EU-CELLTRION INC.-2024GR024437

PATIENT

DRUGS (5)
  1. INFLIXIMAB [Suspect]
     Active Substance: INFLIXIMAB
     Indication: Crohn^s disease
     Dosage: 120MG, EVERY 2 WEEKS
     Route: 058
     Dates: start: 202408
  2. INFLIXIMAB [Suspect]
     Active Substance: INFLIXIMAB
     Dosage: 120MG, EVERY 2 WEEKS
     Route: 058
     Dates: start: 20240919
  3. INFLIXIMAB [Suspect]
     Active Substance: INFLIXIMAB
     Dosage: 120MG, EVERY 2 WEEKS
     Route: 058
     Dates: start: 20241003
  4. INFLIXIMAB [Suspect]
     Active Substance: INFLIXIMAB
     Dosage: 120 MG, EVERY 2 WEEKS
     Route: 058
     Dates: start: 20250619
  5. INFLIXIMAB [Suspect]
     Active Substance: INFLIXIMAB
     Indication: Crohn^s disease
     Route: 041
     Dates: start: 20250702

REACTIONS (4)
  - Intestinal obstruction [Not Recovered/Not Resolved]
  - Product leakage [Unknown]
  - Incorrect dose administered by device [Unknown]
  - Therapy change [Unknown]

NARRATIVE: CASE EVENT DATE: 20240919
